FAERS Safety Report 8287437-8 (Version None)
Quarter: 2012Q2

REPORT INFORMATION
  Report Type: 
  Country: None (occurrence: None)
  Receive Date: 20120416
  Receipt Date: 20120406
  Transmission Date: 20120825
  Serious: No
  Sender: FDA-Public Use
  Company Number: US-BAYER-2012-034272

PATIENT
  Sex: Female

DRUGS (2)
  1. ALEVE (CAPLET) [Suspect]
     Dosage: 9 DF IN ONE DAY
     Route: 048
     Dates: start: 20120405, end: 20120405
  2. ALEVE (CAPLET) [Suspect]
     Dosage: 3 DF, BID IN ONE DAY
     Route: 048
     Dates: start: 20120406, end: 20120406

REACTIONS (1)
  - ABDOMINAL DISCOMFORT [None]
